FAERS Safety Report 24539408 (Version 1)
Quarter: 2024Q4

REPORT INFORMATION
  Report Type: Spontaneous
  Country: US (occurrence: None)
  Receive Date: 20241022
  Receipt Date: 20241022
  Transmission Date: 20250114
  Serious: Yes (Hospitalization)
  Sender: Public
  Company Number: None

PATIENT
  Age: 63 Year
  Sex: Male
  Weight: 90 kg

DRUGS (1)
  1. ATORVASTATIN CALCIUM [Suspect]
     Active Substance: ATORVASTATIN CALCIUM
     Indication: Hyperlipidaemia
     Dosage: FREQUENCY : DAILY;?
     Route: 048
     Dates: start: 20180517, end: 20240423

REACTIONS (2)
  - Myalgia [None]
  - Myalgia [None]

NARRATIVE: CASE EVENT DATE: 20240423
